FAERS Safety Report 20853956 (Version 1)
Quarter: 2022Q2

REPORT INFORMATION
  Report Type: Spontaneous
  Country: US (occurrence: None)
  Receive Date: 20220519
  Receipt Date: 20220519
  Transmission Date: 20220720
  Serious: Yes (Hospitalization)
  Sender: FDA-Public Use
  Company Number: None

PATIENT

DRUGS (1)
  1. EDETATE DISODIUM [Suspect]
     Active Substance: EDETATE DISODIUM

REACTIONS (2)
  - Incorrect dose administered [None]
  - Product selection error [None]
